FAERS Safety Report 5486749-0 (Version None)
Quarter: 2007Q4

REPORT INFORMATION
  Report Type: 
  Country: None (occurrence: None)
  Receive Date: 20071016
  Receipt Date: 20071015
  Transmission Date: 20080405
  Serious: Yes (Other)
  Sender: FDA-Public Use
  Company Number: A0681639A

PATIENT
  Age: 6 Year
  Sex: Male

DRUGS (2)
  1. FLOVENT [Suspect]
     Indication: DRUG USE FOR UNKNOWN INDICATION
     Dosage: 2PUFF PER DAY
     Route: 055
     Dates: start: 20070820, end: 20070828
  2. ALBUTEROL [Concomitant]
     Dosage: 2PUFF AS REQUIRED

REACTIONS (6)
  - ADVERSE DRUG REACTION [None]
  - AGGRESSION [None]
  - DRUG HYPERSENSITIVITY [None]
  - EMOTIONAL DISORDER [None]
  - INSOMNIA [None]
  - MOOD SWINGS [None]
